FAERS Safety Report 6056213-9 (Version None)
Quarter: 2009Q1

REPORT INFORMATION
  Report Type: 
  Country: None (occurrence: None)
  Receive Date: 20090123
  Receipt Date: 20090123
  Transmission Date: 20090719
  Serious: Yes (Hospitalization)
  Sender: FDA-Public Use
  Company Number: None

PATIENT
  Sex: Female
  Weight: 69.1 kg

DRUGS (5)
  1. BLEOMYCIN SULFATE [Suspect]
     Dosage: 27 UNIT
  2. CYCLOPHOSPHAMIDE [Suspect]
     Dosage: 1425 MG
  3. DOXORUBICIN HYDROCHLORIDE [Suspect]
     Dosage: 90 MG
  4. ETOPOSIDE [Suspect]
     Dosage: 660 MG
  5. G-CSF (FILGRASTIM, AMGEN) [Suspect]
     Dosage: 2400 MCG

REACTIONS (15)
  - ABSCESS FUNGAL [None]
  - ANURIA [None]
  - BACK PAIN [None]
  - BLOOD PRESSURE IMMEASURABLE [None]
  - CATHETER RELATED INFECTION [None]
  - FUNGAEMIA [None]
  - HAEMORRHAGE [None]
  - HYPOTENSION [None]
  - HYPOXIA [None]
  - NAUSEA [None]
  - NEUTROPENIA [None]
  - PERIPHERAL COLDNESS [None]
  - PULMONARY OEDEMA [None]
  - PULSE PRESSURE DECREASED [None]
  - THROMBOCYTOPENIA [None]
